FAERS Safety Report 7860086-9 (Version None)
Quarter: 2011Q4

REPORT INFORMATION
  Report Type: 
  Country: None (occurrence: None)
  Receive Date: 20111026
  Receipt Date: 20111011
  Transmission Date: 20120403
  Serious: Yes (Other)
  Sender: FDA-Public Use
  Company Number: FK201102284

PATIENT
  Age: 54 Year
  Sex: Female

DRUGS (1)
  1. GEMCITABINE [Suspect]
     Indication: BREAST CANCER METASTATIC
     Dosage: 750 MG/M2

REACTIONS (4)
  - PULMONARY TOXICITY [None]
  - BRONCHIOLITIS [None]
  - PLEURAL EFFUSION [None]
  - DYSPNOEA EXERTIONAL [None]
